FAERS Safety Report 7949853-0 (Version None)
Quarter: 2011Q4

REPORT INFORMATION
  Report Type: 
  Country: None (occurrence: None)
  Receive Date: 20111130
  Receipt Date: 20111128
  Transmission Date: 20120403
  Serious: Yes (Other)
  Sender: FDA-Public Use
  Company Number: US-BAYER-2011-114549

PATIENT
  Age: 89 Year
  Sex: Female
  Weight: 57 kg

DRUGS (5)
  1. ONE A DAY WOMEN'S 50+ ADVANTAGE [Suspect]
     Dosage: 1 DF, QD
  2. ATENOLOL AND CHLORTHALIDONE [Concomitant]
  3. SYNTHROID [Concomitant]
  4. ALEVE (CAPLET) [Suspect]
     Indication: ANALGESIC THERAPY
     Dosage: UNK, PRN
  5. MICRO-K [Concomitant]

REACTIONS (9)
  - VISION BLURRED [None]
  - NAUSEA [None]
  - PAIN IN EXTREMITY [None]
  - BURNING SENSATION [None]
  - DIZZINESS [None]
  - GASTROOESOPHAGEAL REFLUX DISEASE [None]
  - TINNITUS [None]
  - HAEMATOCHEZIA [None]
  - VASODILATATION [None]
